FAERS Safety Report 7911377-4 (Version None)
Quarter: 2011Q4

REPORT INFORMATION
  Report Type: 
  Country: None (occurrence: None)
  Receive Date: 20111114
  Receipt Date: 20111103
  Transmission Date: 20120403
  Serious: Yes (Death)
  Sender: FDA-Public Use
  Company Number: GR-ASTELLAS-2011US007500

PATIENT
  Age: 57 Year
  Sex: Female

DRUGS (11)
  1. MICAFUNGIN [Concomitant]
     Indication: PRODUCT USED FOR UNKNOWN INDICATION
     Dosage: UNK
     Route: 065
     Dates: start: 20110304, end: 20110306
  2. AMBISOME [Suspect]
     Dosage: 6 DF, UNKNOWN/D
     Route: 042
     Dates: start: 20110215, end: 20110302
  3. MEROPENEM [Concomitant]
     Indication: PRODUCT USED FOR UNKNOWN INDICATION
     Dosage: UNK
     Route: 065
     Dates: start: 20110312, end: 20110319
  4. IMIPENEM [Concomitant]
     Indication: PRODUCT USED FOR UNKNOWN INDICATION
     Dosage: UNK
     Route: 065
     Dates: start: 20110225, end: 20110302
  5. GENTAMICIN [Concomitant]
     Indication: PRODUCT USED FOR UNKNOWN INDICATION
     Dosage: UNK
     Route: 065
     Dates: start: 20110212, end: 20110228
  6. METRONIDAZOLE [Concomitant]
     Indication: PRODUCT USED FOR UNKNOWN INDICATION
     Dosage: UNK
     Route: 065
     Dates: start: 20110314, end: 20110319
  7. VORICONAZOLE [Concomitant]
     Indication: PRODUCT USED FOR UNKNOWN INDICATION
     Dosage: UNK
     Route: 065
     Dates: start: 20110306, end: 20110319
  8. VANCOMYCIN [Concomitant]
     Dosage: ORAL AND IV GIVEN
     Route: 065
     Dates: start: 20110309, end: 20110319
  9. AMBISOME [Suspect]
     Dosage: 6 DF, UID/QD
     Route: 042
     Dates: start: 20110314, end: 20110319
  10. VANCOMYCIN [Concomitant]
     Indication: PRODUCT USED FOR UNKNOWN INDICATION
     Dosage: ORAL AND IV GIVEN
     Route: 048
     Dates: start: 20110212, end: 20110319
  11. AMBISOME [Suspect]
     Indication: TRICHOSPORON INFECTION
     Dosage: 6 DF, UID/QD
     Route: 042
     Dates: start: 20110302, end: 20110311

REACTIONS (6)
  - VASCULAR PSEUDOANEURYSM [None]
  - GENERAL PHYSICAL HEALTH DETERIORATION [None]
  - NO THERAPEUTIC RESPONSE [None]
  - DRUG INEFFECTIVE FOR UNAPPROVED INDICATION [None]
  - TRICHOSPORON INFECTION [None]
  - SEPSIS [None]
